FAERS Safety Report 5015913-X (Version None)
Quarter: 2006Q2

REPORT INFORMATION
  Report Type: 
  Country: None (occurrence: None)
  Receive Date: 20060525
  Receipt Date: 20060505
  Transmission Date: 20061013
  Serious: Yes (Death)
  Sender: FDA-Public Use
  Company Number: FR200605001946

PATIENT
  Age: 18 Year
  Sex: Male

DRUGS (2)
  1. ZYPREXA [Suspect]
     Indication: SCHIZOPHRENIA
     Dosage: 5 MG, DAILY (1/D), ORAL
     Route: 048
     Dates: start: 20051101, end: 20060417
  2. NOZINAN /NET/ (LEVOMEPROMAZINE) [Concomitant]

REACTIONS (5)
  - ABDOMINAL PAIN [None]
  - CYANOSIS [None]
  - HEADACHE [None]
  - HEPATOMEGALY [None]
  - LYMPHADENOPATHY [None]
